FAERS Safety Report 25777184 (Version 1)
Quarter: 2025Q3

REPORT INFORMATION
  Report Type: Spontaneous
  Country: US (occurrence: US)
  Receive Date: 20250909
  Receipt Date: 20250909
  Transmission Date: 20251021
  Serious: No
  Sender: DOMPE FARMACEUTICI
  Company Number: US-FARMAPROD-202410-3533

PATIENT
  Sex: Male

DRUGS (28)
  1. OXERVATE [Suspect]
     Active Substance: CENEGERMIN-BKBJ
     Indication: Neurotrophic keratopathy
     Route: 047
     Dates: start: 20241003
  2. OXERVATE [Suspect]
     Active Substance: CENEGERMIN-BKBJ
  3. REFRESH LIQUIGEL [Concomitant]
     Active Substance: CARBOXYMETHYLCELLULOSE SODIUM
  4. PRED FORTE [Concomitant]
     Active Substance: PREDNISOLONE ACETATE
  5. ALBUTEROL SULFATE [Concomitant]
     Active Substance: ALBUTEROL SULFATE
  6. ADVAIR HFA [Concomitant]
     Active Substance: FLUTICASONE PROPIONATE\SALMETEROL XINAFOATE
  7. CARAC [Concomitant]
     Active Substance: FLUOROURACIL
  8. FLUOCINONIDE [Concomitant]
     Active Substance: FLUOCINONIDE
  9. ZYRTEC [Concomitant]
     Active Substance: CETIRIZINE HYDROCHLORIDE
  10. VITAMIN D3 [Concomitant]
     Active Substance: CHOLECALCIFEROL
  11. VITAMIN E [Concomitant]
     Active Substance: .ALPHA.-TOCOPHEROL
  12. CITRACAL + D MAXIMUM [Concomitant]
  13. MAGNESIUM OXIDE [Concomitant]
     Active Substance: MAGNESIUM OXIDE
  14. VITAMINS [Concomitant]
     Active Substance: VITAMINS
  15. OMEGA-3 ACIDS [Concomitant]
     Active Substance: OMEGA-3 FATTY ACIDS
  16. OMEPRAZOLE [Concomitant]
     Active Substance: OMEPRAZOLE
  17. LOSARTAN POTASSIUM [Concomitant]
     Active Substance: LOSARTAN POTASSIUM
  18. AMLODIPINE BESYLATE [Concomitant]
     Active Substance: AMLODIPINE BESYLATE
  19. GEMFIBROZIL [Concomitant]
     Active Substance: GEMFIBROZIL
  20. SYNTHROID [Concomitant]
     Active Substance: LEVOTHYROXINE SODIUM
  21. ALLOPURINOL [Concomitant]
     Active Substance: ALLOPURINOL
  22. UROCIT-K [Concomitant]
     Active Substance: POTASSIUM CITRATE
  23. ZOLOFT [Concomitant]
     Active Substance: SERTRALINE HYDROCHLORIDE
  24. ELIQUIS [Concomitant]
     Active Substance: APIXABAN
  25. METOPROLOL SUCCINATE [Concomitant]
     Active Substance: METOPROLOL SUCCINATE
  26. PROGRAF [Concomitant]
     Active Substance: TACROLIMUS
  27. HUMULIN NOS [Concomitant]
     Active Substance: INSULIN HUMAN
  28. BLOOD SERUM TEARS [Concomitant]

REACTIONS (2)
  - Eye pain [Not Recovered/Not Resolved]
  - Therapy partial responder [Unknown]
